FAERS Safety Report 6138103-6 (Version None)
Quarter: 2009Q1

REPORT INFORMATION
  Report Type: 
  Country: None (occurrence: None)
  Receive Date: 20090331
  Receipt Date: 20090323
  Transmission Date: 20090719
  Serious: Yes (Other)
  Sender: FDA-Public Use
  Company Number: US-ASTRAZENECA-2009UW02121

PATIENT
  Sex: Female
  Weight: 79.4 kg

DRUGS (10)
  1. CRESTOR [Suspect]
     Indication: BLOOD CHOLESTEROL INCREASED
     Route: 048
  2. LISINOPRIL AND HYDROCHLOROTHIAZIDE [Concomitant]
     Dosage: 20.12.5 MG
     Route: 048
  3. AMLODIPINE BESYLATE [Concomitant]
     Route: 048
  4. CELEBREX [Concomitant]
     Route: 048
  5. COENZYME Q10 [Concomitant]
     Route: 048
  6. ASPIRIN [Concomitant]
     Route: 048
  7. IRON [Concomitant]
     Route: 048
  8. CENTRUM SILVER [Concomitant]
     Route: 048
  9. CALTRATE [Concomitant]
     Route: 048
  10. BONIVA [Concomitant]
     Route: 048

REACTIONS (5)
  - ARTHRITIS [None]
  - ASTHENIA [None]
  - MUSCLE INJURY [None]
  - MUSCLE SPASMS [None]
  - MYALGIA [None]
